FAERS Safety Report 25964910 (Version 1)
Quarter: 2025Q4

REPORT INFORMATION
  Report Type: Spontaneous
  Country: CN (occurrence: CN)
  Receive Date: 20251027
  Receipt Date: 20251027
  Transmission Date: 20260118
  Serious: Yes (Hospitalization, Other)
  Sender: NOVO NORDISK
  Company Number: CN-NOVOPROD-1542596

PATIENT
  Age: 54 Year
  Sex: Male
  Weight: 88.5 kg

DRUGS (1)
  1. RYZODEG 70/30 [Suspect]
     Active Substance: INSULIN ASPART\INSULIN DEGLUDEC
     Indication: Type 2 diabetes mellitus
     Dosage: 6 IU, TID(BEFORE EACH MEAL)
     Dates: start: 2022

REACTIONS (5)
  - Myocardial infarction [Recovered/Resolved]
  - Weight decreased [Unknown]
  - Blood glucose abnormal [Unknown]
  - Weight increased [Unknown]
  - Abdominal distension [Unknown]
